FAERS Safety Report 6020749-7 (Version None)
Quarter: 2008Q4

REPORT INFORMATION
  Report Type: 
  Country: None (occurrence: None)
  Receive Date: 20081229
  Receipt Date: 20081216
  Transmission Date: 20090506
  Serious: Yes (Other)
  Sender: FDA-Public Use
  Company Number: PHHY2008BR32206

PATIENT
  Age: 66 Year
  Sex: Male
  Weight: 75 kg

DRUGS (3)
  1. EXFORGE [Suspect]
     Indication: HYPERTENSION
     Dosage: 1 DF, QD
     Route: 048
     Dates: start: 20081202, end: 20081212
  2. INDAPAMIDE [Concomitant]
     Indication: URINE OUTPUT DECREASED
     Dosage: ONCE DAILY
     Route: 048
     Dates: start: 20081202, end: 20081212
  3. CORDIRON [Concomitant]
     Indication: BLOOD CHOLESTEROL DECREASED
     Dosage: ONCE DAILY
     Route: 048
     Dates: start: 20081202, end: 20081212

REACTIONS (6)
  - DIZZINESS [None]
  - ERYTHEMA [None]
  - HYPOAESTHESIA ORAL [None]
  - LIP SWELLING [None]
  - PRURITUS [None]
  - SPEECH DISORDER [None]
